FAERS Safety Report 8611698 (Version 14)
Quarter: 2015Q1

REPORT INFORMATION
  Report Type: Spontaneous
  Country: US (occurrence: US)
  Receive Date: 20120613
  Receipt Date: 20150205
  Transmission Date: 20150721
  Serious: Yes (Hospitalization, Other)
  Sender: FDA-Public Use
  Company Number: US-ASTRAZENECA-2012SE38157

PATIENT
  Age: 525 Month
  Sex: Male
  Weight: 73 kg

DRUGS (44)
  1. SEROQUEL [Suspect]
     Active Substance: QUETIAPINE FUMARATE
     Indication: DEPRESSION
     Route: 048
     Dates: start: 2005
  2. SEROQUEL [Suspect]
     Active Substance: QUETIAPINE FUMARATE
     Indication: BIPOLAR DISORDER
     Route: 048
     Dates: start: 20101108
  3. COGENTIN [Concomitant]
     Active Substance: BENZTROPINE MESYLATE
  4. CYMBALTA [Concomitant]
     Active Substance: DULOXETINE HYDROCHLORIDE
  5. CLONIDINE. [Concomitant]
     Active Substance: CLONIDINE
  6. NEXIUM [Concomitant]
     Active Substance: ESOMEPRAZOLE MAGNESIUM
  7. KLONOPIN [Concomitant]
     Active Substance: CLONAZEPAM
     Indication: BIPOLAR DISORDER
  8. NORVASC [Concomitant]
     Active Substance: AMLODIPINE BESYLATE
  9. SEROQUEL [Suspect]
     Active Substance: QUETIAPINE FUMARATE
     Indication: DEPRESSION
     Dosage: TAKE UP TO SIX AT BEDTIME.
     Route: 048
     Dates: start: 200409
  10. METFORMIN [Concomitant]
     Active Substance: METFORMIN HYDROCHLORIDE
     Route: 048
  11. LISINOPRIL. [Concomitant]
     Active Substance: LISINOPRIL
     Dates: start: 20120620, end: 20130620
  12. PROZAC [Concomitant]
     Active Substance: FLUOXETINE HYDROCHLORIDE
  13. TRAZODONE [Concomitant]
     Active Substance: TRAZODONE HYDROCHLORIDE
     Route: 048
  14. SEROQUEL [Suspect]
     Active Substance: QUETIAPINE FUMARATE
     Indication: BIPOLAR DISORDER
     Dosage: TAKE UP TO SIX AT BEDTIME.
     Route: 048
     Dates: start: 200409
  15. ZOFRAN [Concomitant]
     Active Substance: ONDANSETRON HYDROCHLORIDE
  16. HYDROCHLOROTHIAZIDE. [Concomitant]
     Active Substance: HYDROCHLOROTHIAZIDE
  17. MIRTAZAPINE. [Concomitant]
     Active Substance: MIRTAZAPINE
     Route: 048
  18. SEROQUEL [Suspect]
     Active Substance: QUETIAPINE FUMARATE
     Indication: DEPRESSION
     Dosage: 2 TAB AT BEDTIME
     Route: 048
     Dates: start: 20030428
  19. SEROQUEL [Suspect]
     Active Substance: QUETIAPINE FUMARATE
     Indication: DEPRESSION
     Route: 048
     Dates: start: 2005
  20. LITHIUM [Concomitant]
     Active Substance: LITHIUM CARBONATE
  21. MEGESTROL [Concomitant]
     Active Substance: MEGESTROL
     Dates: start: 20121029, end: 20131029
  22. PRAVASTATIN [Concomitant]
     Active Substance: PRAVASTATIN\PRAVASTATIN SODIUM
     Route: 048
  23. LOVENOX [Concomitant]
     Active Substance: ENOXAPARIN SODIUM
  24. RISPERIDONE. [Concomitant]
     Active Substance: RISPERIDONE
  25. TRAMADOL [Concomitant]
     Active Substance: TRAMADOL
     Indication: BRONCHITIS
  26. ALPRAZOLAM. [Concomitant]
     Active Substance: ALPRAZOLAM
     Route: 048
  27. SEROQUEL [Suspect]
     Active Substance: QUETIAPINE FUMARATE
     Indication: BIPOLAR DISORDER
     Route: 048
     Dates: start: 20030508
  28. SEROQUEL [Suspect]
     Active Substance: QUETIAPINE FUMARATE
     Indication: DEPRESSION
     Route: 048
     Dates: start: 20030508
  29. HYDROMORPHONE [Concomitant]
     Active Substance: HYDROMORPHONE
  30. PEPCID [Concomitant]
     Active Substance: FAMOTIDINE
  31. GEODON [Concomitant]
     Active Substance: ZIPRASIDONE HYDROCHLORIDE\ZIPRASIDONE MESYLATE
  32. KLONOPIN [Concomitant]
     Active Substance: CLONAZEPAM
     Indication: DEPRESSION
  33. WELLBUTRIN XL [Concomitant]
     Active Substance: BUPROPION HYDROCHLORIDE
  34. EFFEXOR [Concomitant]
     Active Substance: VENLAFAXINE HYDROCHLORIDE
  35. SEROQUEL [Suspect]
     Active Substance: QUETIAPINE FUMARATE
     Indication: BIPOLAR DISORDER
     Dosage: 2 TAB AT BEDTIME
     Route: 048
     Dates: start: 20030428
  36. SEROQUEL [Suspect]
     Active Substance: QUETIAPINE FUMARATE
     Indication: BIPOLAR DISORDER
     Route: 048
     Dates: start: 2005
  37. SEROQUEL [Suspect]
     Active Substance: QUETIAPINE FUMARATE
     Indication: BIPOLAR DISORDER
     Route: 048
     Dates: start: 2005
  38. THORAZINE [Concomitant]
     Active Substance: CHLORPROMAZINE
  39. ABILIFY [Concomitant]
     Active Substance: ARIPIPRAZOLE
     Indication: BIPOLAR DISORDER
  40. ABILIFY [Concomitant]
     Active Substance: ARIPIPRAZOLE
     Indication: DEPRESSION
  41. SEROQUEL [Suspect]
     Active Substance: QUETIAPINE FUMARATE
     Indication: DEPRESSION
     Route: 048
     Dates: start: 20101108
  42. SAPHRIS [Concomitant]
     Active Substance: ASENAPINE MALEATE
  43. TYLENOL [Concomitant]
     Active Substance: ACETAMINOPHEN
  44. ANTIBIOTICS [Concomitant]
     Active Substance: UNSPECIFIED INGREDIENT
     Indication: BRONCHITIS

REACTIONS (9)
  - Ankle fracture [Unknown]
  - Weight increased [Unknown]
  - Foot fracture [Unknown]
  - Lower limb fracture [Unknown]
  - Fall [Unknown]
  - Somnolence [Unknown]
  - Dry mouth [Unknown]
  - Diabetes mellitus [Unknown]
  - Pancreatitis [Unknown]

NARRATIVE: CASE EVENT DATE: 200501
